FAERS Safety Report 10457607 (Version 2)
Quarter: 2014Q3

REPORT INFORMATION
  Report Type: Spontaneous
  Country: DK (occurrence: DK)
  Receive Date: 20140916
  Receipt Date: 20140916
  Transmission Date: 20150326
  Serious: Yes (Other)
  Sender: FDA-Public Use
  Company Number: DK-ABBVIE-14K-044-1276986-00

PATIENT
  Age: 30 Year
  Sex: Female
  Weight: 119 kg

DRUGS (8)
  1. HUMIRA [Suspect]
     Active Substance: ADALIMUMAB
     Dosage: DOSE ACCORDING TO SCHEMA FOR ANTI-TNF-TREATMENT.
     Route: 058
     Dates: end: 20130415
  2. REMICADE [Suspect]
     Active Substance: INFLIXIMAB
     Indication: CROHN^S DISEASE
     Dosage: DOSE ACCORDING TO SCHEMA FOR ANTI-TNF-TREATMENT.
     Route: 042
     Dates: start: 20130204, end: 20130204
  3. REMICADE [Suspect]
     Active Substance: INFLIXIMAB
     Dosage: DOSE ACCORDING TO SCHEMA FOR ANTI-TNF-TREATMENT.
     Route: 042
     Dates: start: 20130318, end: 20130318
  4. HUMIRA [Suspect]
     Active Substance: ADALIMUMAB
     Indication: CROHN^S DISEASE
     Dosage: DOSE ACCORDING TO SCHEMA FOR ANTI-TNF-TREATMENT.
     Route: 058
     Dates: start: 20130326, end: 20130326
  5. MAGNYL [Concomitant]
     Active Substance: ASPIRIN
     Indication: PRODUCT USED FOR UNKNOWN INDICATION
     Dates: start: 20130225
  6. REMICADE [Suspect]
     Active Substance: INFLIXIMAB
     Dosage: DOSE ACCORDING TO SCHEMA FOR ANTI-TNF-TREATMENT.
     Route: 042
     Dates: start: 20130218, end: 20130218
  7. IMUREL [Concomitant]
     Active Substance: AZATHIOPRINE SODIUM
     Indication: CROHN^S DISEASE
     Dates: start: 20130128, end: 20131015
  8. METFORMIN [Concomitant]
     Active Substance: METFORMIN HYDROCHLORIDE
     Indication: PRODUCT USED FOR UNKNOWN INDICATION

REACTIONS (3)
  - Dermatitis psoriasiform [Not Recovered/Not Resolved]
  - Dermatitis psoriasiform [Not Recovered/Not Resolved]
  - Pustular psoriasis [Not Recovered/Not Resolved]

NARRATIVE: CASE EVENT DATE: 20130311
